FAERS Safety Report 20961049 (Version 1)
Quarter: 2022Q2

REPORT INFORMATION
  Report Type: Spontaneous
  Country: SE (occurrence: SE)
  Receive Date: 20220615
  Receipt Date: 20220615
  Transmission Date: 20220721
  Serious: Yes (Death)
  Sender: FDA-Public Use
  Company Number: None

PATIENT
  Age: 86 Year
  Sex: Male

DRUGS (12)
  1. ATORVASTATIN [Suspect]
     Active Substance: ATORVASTATIN
     Indication: Product used for unknown indication
     Dosage: 60 MG, QD (60MG DAGLIGEN)
     Route: 048
     Dates: end: 20220114
  2. MITOBRONITOLUM [Concomitant]
     Indication: Product used for unknown indication
     Dosage: 50 MG 1 DAGLIGEN (DEPOTTABLETT)
     Route: 048
  3. CALCIUM CARBONATE\CHOLECALCIFEROL [Concomitant]
     Active Substance: CALCIUM CARBONATE\CHOLECALCIFEROL
     Indication: Product used for unknown indication
     Dosage: 1 DOSAGE FORM, QD (500 MG/800 IE 1 TILL NATTEN(DEPOTTABLETT)
     Route: 048
  4. ESOMEPRAZOLE [Concomitant]
     Active Substance: ESOMEPRAZOLE
     Indication: Product used for unknown indication
     Dosage: 40 MG 1X1(ENTEROTABLETT)
     Route: 048
  5. ACETAMINOPHEN [Concomitant]
     Active Substance: ACETAMINOPHEN
     Indication: Product used for unknown indication
     Dosage: 1 G, PRN (1 G 1 VID BEHOV)
     Route: 048
  6. ACETYLCYSTEIN ALTERNOVA [Concomitant]
     Indication: Product used for unknown indication
     Dosage: 200 MG, QD 1 TABLETT DAGLIGEN(BRUSTABLETT)
     Route: 048
  7. LEVOTHYROXINE SODIUM [Concomitant]
     Active Substance: LEVOTHYROXINE SODIUM
     Indication: Product used for unknown indication
     Dosage: 100 UG (100MIKROGRAM VARANNAN DAG, 75 VARANNAN DAG)
     Route: 065
  8. LEVOTHYROXINE SODIUM [Concomitant]
     Active Substance: LEVOTHYROXINE SODIUM
     Dosage: 75 MG (100MIKROGRAM VARANNAN DAG, 75 VARANNAN DAG)
     Route: 065
  9. FELODIPIN ACTAVIS [Concomitant]
     Indication: Product used for unknown indication
     Dosage: 5 MG, QD 1 TABLETT DAGLIGEN (DEPOTTABLETT)
     Route: 048
  10. SULFASALAZINE [Concomitant]
     Active Substance: SULFASALAZINE
     Indication: Product used for unknown indication
     Dosage: 2000 MG, QD (500 MG 2X2 (ENTEROTABLETT))
     Route: 048
  11. PREDNISOLONE [Concomitant]
     Active Substance: PREDNISOLONE
     Indication: Product used for unknown indication
     Dosage: 5 MG, QD (5 MG 1 DAGLIGEN)
     Route: 048
  12. METOPROLOL EBB [Concomitant]
     Indication: Product used for unknown indication
     Dosage: 50 MG, QD (DEPOTTABLETT)
     Route: 048

REACTIONS (3)
  - Myocardial infarction [Fatal]
  - Rhabdomyolysis [Fatal]
  - Acute kidney injury [Fatal]

NARRATIVE: CASE EVENT DATE: 20220101
